FAERS Safety Report 9449836 (Version 2)
Quarter: 2013Q3

REPORT INFORMATION
  Report Type: Report from Study
  Country: BR (occurrence: BR)
  Receive Date: 20130809
  Receipt Date: 20130923
  Transmission Date: 20140515
  Serious: Yes (Other)
  Sender: FDA-Public Use
  Company Number: PHHY2013BR085535

PATIENT
  Sex: Female
  Weight: 45 kg

DRUGS (11)
  1. EXELON [Suspect]
     Indication: DEMENTIA ALZHEIMER^S TYPE
     Dosage: 1 DF, Q12H
     Route: 048
     Dates: start: 201304
  2. ATENOLOL [Concomitant]
     Indication: BLOOD PRESSURE ABNORMAL
     Dosage: 1 DF, QD
     Route: 048
  3. ENALAPRIL [Concomitant]
     Indication: BLOOD PRESSURE ABNORMAL
     Dosage: 1 DF, BID
     Route: 048
  4. PANTOPRAZOLE [Concomitant]
     Indication: ULCER
     Dosage: 1 DF, UNK
     Route: 048
  5. OMEPRAZOLE [Concomitant]
     Indication: ULCER
     Dosage: 1 DF, UNK
     Route: 048
  6. BROMOPRIDE [Concomitant]
     Indication: SALIVARY HYPERSECRETION
     Dosage: UNK UKN, UNK
  7. BROMOPRIDE [Concomitant]
     Indication: NAUSEA
  8. ALUMINUM HYDROXIDE [Concomitant]
     Indication: SALIVARY HYPERSECRETION
     Dosage: UNK UKN, UNK
  9. ALUMINUM HYDROXIDE [Concomitant]
     Indication: NAUSEA
  10. POLYVITAMIN [Concomitant]
     Indication: ASTHENIA
     Dosage: UNK UKN, UNK
  11. POLYVITAMIN [Concomitant]
     Indication: WEIGHT DECREASED

REACTIONS (6)
  - Dementia Alzheimer^s type [Not Recovered/Not Resolved]
  - Memory impairment [Not Recovered/Not Resolved]
  - Fear [Not Recovered/Not Resolved]
  - Hallucination [Not Recovered/Not Resolved]
  - Confusional state [Not Recovered/Not Resolved]
  - Psychiatric symptom [Unknown]
